FAERS Safety Report 6587569-6 (Version None)
Quarter: 2010Q1

REPORT INFORMATION
  Report Type: 
  Country: None (occurrence: None)
  Receive Date: 20100218
  Receipt Date: 20100209
  Transmission Date: 20100710
  Serious: Yes (Death, Hospitalization)
  Sender: FDA-Public Use
  Company Number: US-BIOGENIDEC-2010BI001058

PATIENT
  Age: 62 Year
  Sex: Male

DRUGS (8)
  1. AVONEX [Suspect]
     Indication: MULTIPLE SCLEROSIS
     Route: 030
     Dates: start: 20080301, end: 20091217
  2. AVONEX [Suspect]
     Route: 030
     Dates: start: 19970101
  3. MOBIC [Concomitant]
  4. BACLOFEN [Concomitant]
  5. AMANTADINE HCL [Concomitant]
  6. TIZANIDINE HCL [Concomitant]
  7. TRAMADOL HCL [Concomitant]
  8. FLOMAX [Concomitant]

REACTIONS (4)
  - CARDIAC FAILURE [None]
  - CELLULITIS [None]
  - CHEST PAIN [None]
  - SEPSIS [None]
